FAERS Safety Report 21839020 (Version 2)
Quarter: 2023Q1

REPORT INFORMATION
  Report Type: Report from Study
  Country: US (occurrence: US)
  Receive Date: 20230109
  Receipt Date: 20230202
  Transmission Date: 20230418
  Serious: Yes (Other)
  Sender: FDA-Public Use
  Company Number: US-OTSUKA-2023_000230

PATIENT
  Age: 19 Year
  Sex: Female

DRUGS (2)
  1. TOLVAPTAN [Suspect]
     Active Substance: TOLVAPTAN
     Indication: Congenital cystic kidney disease
     Dosage: 45 MG, QD (IN THE MORNING)
     Route: 065
     Dates: start: 20221227
  2. TOLVAPTAN [Suspect]
     Active Substance: TOLVAPTAN
     Dosage: 15 MG, QD (IN THE AFTERNOON)
     Route: 065
     Dates: start: 20221227

REACTIONS (4)
  - Loss of consciousness [Recovered/Resolved]
  - Liver injury [Unknown]
  - Weight decreased [Unknown]
  - Dizziness [Recovered/Resolved]

NARRATIVE: CASE EVENT DATE: 20221229
